FAERS Safety Report 9277366 (Version 1)
Quarter: 2013Q2

REPORT INFORMATION
  Report Type: Spontaneous
  Country: US (occurrence: None)
  Receive Date: 20130503
  Receipt Date: 20130503
  Transmission Date: 20140414
  Serious: No
  Sender: FDA-Public Use
  Company Number: None

PATIENT
  Age: 68 None
  Sex: Male
  Weight: 115.67 kg

DRUGS (2)
  1. TACROLIMUS [Suspect]
     Indication: LUNG TRANSPLANT
     Dosage: EACH MORNING; RDY 525
     Dates: start: 201212, end: 201304
  2. TACROLIMUS [Suspect]
     Indication: LUNG TRANSPLANT
     Dosage: 1.0 MG EACH EVENING RDY526
     Dates: start: 201212, end: 201304

REACTIONS (5)
  - Product substitution issue [None]
  - Malaise [None]
  - Fatigue [None]
  - Pulmonary function test abnormal [None]
  - Product quality issue [None]
